FAERS Safety Report 9316198 (Version 1)
Quarter: 2013Q2

REPORT INFORMATION
  Report Type: Spontaneous
  Country: DE (occurrence: DE)
  Receive Date: 20130530
  Receipt Date: 20130530
  Transmission Date: 20140414
  Serious: Yes (Other)
  Sender: FDA-Public Use
  Company Number: PHHY2013DE034191

PATIENT
  Age: 17 Year
  Sex: Female

DRUGS (6)
  1. LEPONEX [Suspect]
     Indication: DECREASED APPETITE
     Dosage: 125 MG, QD
  2. LEPONEX [Suspect]
     Indication: OFF LABEL USE
     Dosage: 75 MG, QD
     Route: 048
     Dates: start: 2010, end: 20130405
  3. ZYPREXA [Concomitant]
     Indication: ANOREXIA NERVOSA
     Dosage: 5 MG, QD
     Dates: start: 2010
  4. CIPRALEX [Concomitant]
     Indication: DEPRESSION
     Dosage: UNK
  5. CIPRALEX [Concomitant]
     Dosage: 20 MG, QD
     Dates: start: 2010
  6. AKINETON [Concomitant]
     Dosage: UNK

REACTIONS (3)
  - Infection [Unknown]
  - White blood cell count decreased [Recovered/Resolved]
  - Neutrophil count decreased [Recovered/Resolved]
